FAERS Safety Report 7399177-8 (Version None)
Quarter: 2011Q1

REPORT INFORMATION
  Report Type: 
  Country: None (occurrence: None)
  Receive Date: 20110328
  Receipt Date: 20110314
  Transmission Date: 20110831
  Serious: Yes (Hospitalization)
  Sender: FDA-Public Use
  Company Number: 2011MA002397

PATIENT
  Age: 21 Year
  Sex: Female

DRUGS (4)
  1. AMOXICILLIN [Concomitant]
  2. ACETAMINOPHEN AND CODEINE PHOSPHATE [Suspect]
     Indication: ARTHRALGIA
     Dosage: PO
     Route: 048
  3. ERYTHROMYCIN [Concomitant]
  4. FEVERALL [Suspect]
     Indication: ARTHRALGIA
     Dosage: 3 GR;QD;PO
     Route: 048

REACTIONS (24)
  - DYSPNOEA [None]
  - BLOOD BICARBONATE DECREASED [None]
  - BLOOD CREATINE INCREASED [None]
  - DRUG EXPOSURE DURING PREGNANCY [None]
  - BLOOD GLUCOSE DECREASED [None]
  - RESPIRATORY RATE INCREASED [None]
  - HEADACHE [None]
  - MACROCYTOSIS [None]
  - BLOOD CHLORIDE DECREASED [None]
  - MUSCULOSKELETAL CHEST PAIN [None]
  - WHITE BLOOD CELL COUNT INCREASED [None]
  - BLOOD ALKALINE PHOSPHATASE INCREASED [None]
  - VOMITING [None]
  - GAMMA-GLUTAMYLTRANSFERASE INCREASED [None]
  - HAEMOPHILUS INFECTION [None]
  - BLOOD SODIUM DECREASED [None]
  - HAEMODIALYSIS [None]
  - BACK PAIN [None]
  - WHEEZING [None]
  - KETONURIA [None]
  - METABOLIC ACIDOSIS [None]
  - CAESAREAN SECTION [None]
  - ANISOCYTOSIS [None]
  - DECREASED APPETITE [None]
